FAERS Safety Report 8389607 (Version 2)
Quarter: 2015Q1

REPORT INFORMATION
  Report Type: Report from Study
  Country: US (occurrence: US)
  Receive Date: 20120203
  Receipt Date: 20150227
  Transmission Date: 20150721
  Serious: Yes (Death)
  Sender: FDA-Public Use
  Company Number: US-ROCHE-1036200

PATIENT
  Sex: Male

DRUGS (11)
  1. HEPARIN [Concomitant]
     Active Substance: HEPARIN SODIUM
  2. VINCRISTINE [Concomitant]
     Active Substance: VINCRISTINE
     Route: 042
  3. AVASTIN [Suspect]
     Active Substance: BEVACIZUMAB
     Indication: RENAL CANCER
     Route: 042
  4. FLOMAX (UNITED STATES) [Concomitant]
     Route: 065
  5. NAVELBINE [Concomitant]
     Active Substance: VINORELBINE TARTRATE
     Route: 042
  6. PRAVACHOL [Concomitant]
     Active Substance: PRAVASTATIN SODIUM
     Route: 065
  7. ZOFRAN [Concomitant]
     Active Substance: ONDANSETRON HYDROCHLORIDE
     Route: 042
  8. PRILOSEC [Concomitant]
     Active Substance: OMEPRAZOLE MAGNESIUM
     Route: 065
  9. ASPIRIN. [Concomitant]
     Active Substance: ASPIRIN
     Route: 065
  10. COLCHICINE. [Concomitant]
     Active Substance: COLCHICINE
     Route: 065
  11. BETAPACE [Concomitant]
     Active Substance: SOTALOL HYDROCHLORIDE
     Dosage: 1/2 TABLET
     Route: 048

REACTIONS (7)
  - Lip pain [Unknown]
  - Haematoma [Unknown]
  - Fall [Unknown]
  - Lip swelling [Unknown]
  - Off label use [Unknown]
  - Death [Fatal]
  - Fatigue [Unknown]
